FAERS Safety Report 4833270-6 (Version None)
Quarter: 2005Q4

REPORT INFORMATION
  Report Type: 
  Country: None (occurrence: None)
  Receive Date: 20051117
  Receipt Date: 20051108
  Transmission Date: 20060501
  Serious: No
  Sender: FDA-Public Use
  Company Number: 2005-10-0862

PATIENT
  Age: 67 Year
  Sex: Male

DRUGS (3)
  1. PEG-INTRON [Suspect]
     Dosage: 120 MCG QWK
     Dates: start: 20050622
  2. RIBAVIRIN [Suspect]
     Dosage: 1000 MG QD ORAL
     Route: 048
     Dates: start: 20050622
  3. ISTIN [Concomitant]

REACTIONS (2)
  - LYMPHADENOPATHY [None]
  - TESTICULAR SWELLING [None]
